FAERS Safety Report 7604170-3 (Version None)
Quarter: 2011Q2

REPORT INFORMATION
  Report Type: 
  Country: None (occurrence: None)
  Receive Date: 20110630
  Receipt Date: 20110616
  Transmission Date: 20111010
  Serious: No
  Sender: FDA-Public Use
  Company Number: LTI2011A00161

PATIENT
  Age: 60 Year
  Sex: Male

DRUGS (1)
  1. COMPETACT (PIOGLITAZONE HYDROCHLORIDE, METFORMIN HYDROCHLORIDE) [Suspect]
     Indication: TYPE 2 DIABETES MELLITUS
     Dosage: 2 TAB ( 1 TAB., 2 IN 1 D)
     Route: 048
     Dates: start: 20101001, end: 20110415

REACTIONS (3)
  - URINARY BLADDER POLYP [None]
  - BLADDER NEOPLASM [None]
  - HAEMATURIA [None]
